FAERS Safety Report 24110679 (Version 1)
Quarter: 2024Q3

REPORT INFORMATION
  Report Type: Spontaneous
  Country: US (occurrence: None)
  Receive Date: 20240717
  Receipt Date: 20240717
  Transmission Date: 20241017
  Serious: No
  Sender: Public
  Company Number: None

PATIENT
  Age: 67 Year
  Sex: Male
  Weight: 135 kg

DRUGS (11)
  1. RYBELSUS [Suspect]
     Active Substance: SEMAGLUTIDE
     Indication: Type 2 diabetes mellitus
  2. RYBELSUS [Suspect]
     Active Substance: SEMAGLUTIDE
     Indication: Weight decreased
  3. AMIODARONE [Concomitant]
     Active Substance: AMIODARONE
  4. COREG [Concomitant]
     Active Substance: CARVEDILOL
  5. RANOLAZINE [Concomitant]
     Active Substance: RANOLAZINE
  6. FINASTERIDE [Concomitant]
     Active Substance: FINASTERIDE
  7. EPLERENONE [Concomitant]
     Active Substance: EPLERENONE
  8. PREGABALIN [Concomitant]
     Active Substance: PREGABALIN
  9. JARDIANCE [Concomitant]
     Active Substance: EMPAGLIFLOZIN
  10. VITAMIN D3 [Concomitant]
     Active Substance: CHOLECALCIFEROL
  11. Aspirin [Concomitant]

REACTIONS (6)
  - Vomiting projectile [None]
  - Pain [None]
  - Obstruction [None]
  - Nausea [None]
  - Therapy cessation [None]
  - Pancreatitis [None]

NARRATIVE: CASE EVENT DATE: 20231001
